FAERS Safety Report 11292460 (Version 1)
Quarter: 2015Q3

REPORT INFORMATION
  Report Type: Spontaneous
  Country: US (occurrence: None)
  Receive Date: 20150721
  Receipt Date: 20150721
  Transmission Date: 20151125
  Serious: Yes (Other)
  Sender: FDA-Public Use
  Company Number: None

PATIENT
  Age: 50 Year
  Sex: Male
  Weight: 92.08 kg

DRUGS (2)
  1. LISINOPRIL-HCTZ [Suspect]
     Active Substance: HYDROCHLOROTHIAZIDE\LISINOPRIL
     Indication: HYPERTENSION
     Route: 048
     Dates: start: 200912, end: 201001
  2. DIOVAN [Suspect]
     Active Substance: VALSARTAN

REACTIONS (1)
  - Treatment failure [None]

NARRATIVE: CASE EVENT DATE: 200912
